FAERS Safety Report 7572675-X (Version None)
Quarter: 2011Q2

REPORT INFORMATION
  Report Type: 
  Country: None (occurrence: None)
  Receive Date: 20110627
  Receipt Date: 20110617
  Transmission Date: 20111010
  Serious: No
  Sender: FDA-Public Use
  Company Number: US-BIOGENIDEC-2011BI022657

PATIENT
  Age: 50 Year
  Sex: Female

DRUGS (2)
  1. AVONEX [Suspect]
     Indication: MULTIPLE SCLEROSIS
     Route: 030
     Dates: start: 20030101
  2. AVONEX [Suspect]
     Route: 030
     Dates: start: 20030801, end: 20030101

REACTIONS (8)
  - WEIGHT INCREASED [None]
  - BALANCE DISORDER [None]
  - OEDEMA PERIPHERAL [None]
  - LOSS OF CONTROL OF LEGS [None]
  - MENTAL IMPAIRMENT [None]
  - INJECTION SITE SWELLING [None]
  - GAIT DISTURBANCE [None]
  - TEMPERATURE INTOLERANCE [None]
